FAERS Safety Report 25266635 (Version 2)
Quarter: 2025Q4

REPORT INFORMATION
  Report Type: Spontaneous
  Country: JP (occurrence: JP)
  Receive Date: 20250505
  Receipt Date: 20251006
  Transmission Date: 20260117
  Serious: Yes (Death, Hospitalization)
  Sender: ROCHE
  Company Number: JP-CHUGAI-2025013957AA

PATIENT
  Age: 64 Year
  Sex: Female
  Weight: 54.2 kg

DRUGS (3)
  1. TECENTRIQ [Suspect]
     Active Substance: ATEZOLIZUMAB
     Indication: Triple negative breast cancer
     Dosage: 840 MILLIGRAM, ONCE/2WEEKS
     Route: 042
     Dates: start: 20250204, end: 20250225
  2. ABRAXANE [Suspect]
     Active Substance: PACLITAXEL
     Indication: Triple negative breast cancer
     Dosage: UNK
     Route: 042
     Dates: start: 20250204, end: 20250225
  3. DEXAMETHASONE SODIUM PHOSPHATE [Concomitant]
     Active Substance: DEXAMETHASONE SODIUM PHOSPHATE
     Dates: start: 20250204, end: 20250225

REACTIONS (2)
  - Hepatic function abnormal [Recovering/Resolving]
  - Disease progression [Fatal]

NARRATIVE: CASE EVENT DATE: 20250325
